FAERS Safety Report 5600587-7 (Version None)
Quarter: 2008Q1

REPORT INFORMATION
  Report Type: 
  Country: None (occurrence: None)
  Receive Date: 20080111
  Receipt Date: 20070423
  Transmission Date: 20080703
  Serious: Yes (Hospitalization, Other)
  Sender: FDA-Public Use
  Company Number: HQWYE285324FEB04

PATIENT
  Age: 50 Year
  Sex: Female

DRUGS (1)
  1. PREMPRO [Suspect]
     Indication: HORMONE REPLACEMENT THERAPY
     Dosage: DOSE UNSPECIFIED, ORAL
     Route: 048
     Dates: start: 20000901, end: 20001116

REACTIONS (1)
  - MYOCARDIAL INFARCTION [None]
